FAERS Safety Report 20361497 (Version 1)
Quarter: 2022Q1

REPORT INFORMATION
  Report Type: Report from Study
  Country: EG (occurrence: EG)
  Receive Date: 20220121
  Receipt Date: 20220121
  Transmission Date: 20220423
  Serious: Yes (Other)
  Sender: FDA-Public Use
  Company Number: EG-NOVARTISPH-NVSC2022EG007649

PATIENT
  Age: 40 Year
  Sex: Female

DRUGS (7)
  1. HYRIMOZ [Suspect]
     Active Substance: ADALIMUMAB-ADAZ
     Indication: Scleroderma
     Dosage: 40 MG, EVERY OTHER WEEK FOR 3 MONTHS
     Route: 058
     Dates: start: 20211215
  2. IMURAN [Concomitant]
     Active Substance: AZATHIOPRINE
     Indication: Immunosuppressant drug therapy
     Dosage: 2 DOSAGE FORM, QD
     Route: 065
     Dates: start: 202111
  3. SOLUPRED [Concomitant]
     Indication: Immunosuppressant drug therapy
     Dosage: 2 DOSAGE FORM, QD
     Route: 065
     Dates: start: 202007
  4. SOLUPRED [Concomitant]
     Dosage: 1.5 DOSAGE FORM
     Route: 065
  5. SOLUPRED [Concomitant]
     Dosage: 1 DOSAGE FORM, QD
     Route: 065
  6. NEXIUM [Concomitant]
     Active Substance: ESOMEPRAZOLE MAGNESIUM
     Indication: Abdominal discomfort
     Dosage: UNK, QD (EMPTY STOMACH)
     Route: 065
     Dates: start: 202007
  7. FERROGLOBIN [Concomitant]
     Indication: Anaemia
     Dosage: 1 DOSAGE FORM, QD
     Route: 065
     Dates: start: 202111

REACTIONS (13)
  - Skin ulcer [Recovered/Resolved]
  - Acne [Recovered/Resolved]
  - Movement disorder [Recovered/Resolved]
  - Skin injury [Recovered/Resolved]
  - Anxiety [Not Recovered/Not Resolved]
  - Nervousness [Not Recovered/Not Resolved]
  - Pain [Not Recovered/Not Resolved]
  - Urticaria [Not Recovered/Not Resolved]
  - Hypersensitivity [Not Recovered/Not Resolved]
  - Injection site hypersensitivity [Not Recovered/Not Resolved]
  - Injection site pain [Not Recovered/Not Resolved]
  - Injection site pruritus [Not Recovered/Not Resolved]
  - Off label use [Not Recovered/Not Resolved]

NARRATIVE: CASE EVENT DATE: 20211215
